FAERS Safety Report 6784263 (Version 17)
Quarter: 2013Q3

REPORT INFORMATION
  Report Type: Spontaneous
  Country: US (occurrence: US)
  Receive Date: 20081010
  Receipt Date: 20130710
  Transmission Date: 20140515
  Serious: Yes (Other)
  Sender: FDA-Public Use
  Company Number: US-ROCHE-552290

PATIENT
  Age: 16 Year
  Sex: Female
  Weight: 52.2 kg

DRUGS (1)
  1. ACCUTANE [Suspect]
     Indication: ACNE
     Dosage: 40MG QAM, 20MG QHS
     Route: 065
     Dates: start: 19980105, end: 19980220

REACTIONS (11)
  - Arthralgia [Unknown]
  - Chills [Unknown]
  - Heart rate increased [Unknown]
  - Stomatitis [Not Recovered/Not Resolved]
  - Haemorrhoids [Unknown]
  - Crohn^s disease [Not Recovered/Not Resolved]
  - Inflammatory bowel disease [Unknown]
  - Colitis [Unknown]
  - Irritable bowel syndrome [Unknown]
  - Depression [Unknown]
  - Gastrooesophageal reflux disease [Not Recovered/Not Resolved]
